FAERS Safety Report 19322317 (Version 2)
Quarter: 2021Q2

REPORT INFORMATION
  Report Type: Spontaneous
  Country: TW (occurrence: TW)
  Receive Date: 20210528
  Receipt Date: 20210607
  Transmission Date: 20210717
  Serious: Yes (Hospitalization, Other)
  Sender: FDA-Public Use
  Company Number: TW-AMGEN-TWNSP2021081741

PATIENT
  Age: 68 Year
  Sex: Female

DRUGS (2)
  1. ENBREL [Suspect]
     Active Substance: ETANERCEPT
     Indication: ANKYLOSING SPONDYLITIS
     Dosage: 25 MG, 2X/WEEK (BIWEEKLY (BIW))
     Route: 058
     Dates: start: 20130619
  2. ENBREL [Suspect]
     Active Substance: ETANERCEPT
     Dosage: 25MG Q10D (EVERY 10 DAYS)
     Route: 058
     Dates: end: 20210520

REACTIONS (3)
  - Gait disturbance [Recovering/Resolving]
  - Arthralgia [Recovering/Resolving]
  - Off label use [Unknown]
